FAERS Safety Report 5310616-6 (Version None)
Quarter: 2007Q1

REPORT INFORMATION
  Report Type: 
  Country: None (occurrence: None)
  Receive Date: 20070201
  Receipt Date: 20061121
  Transmission Date: 20070707
  Serious: No
  Sender: FDA-Public Use
  Company Number: 258743

PATIENT
  Age: 51 Year
  Sex: Male
  Weight: 90.7 kg

DRUGS (4)
  1. LEVEMIR [Suspect]
     Indication: DIABETES MELLITUS INSULIN-DEPENDENT
     Dosage: 42 IU, QD, SUBCUTANEOUS
     Route: 058
     Dates: start: 20061021
  2. NOVOFINE 30 (NEEDLE) [Concomitant]
  3. PROZAC [Concomitant]
  4. ALTACE [Concomitant]

REACTIONS (1)
  - INJECTION SITE MASS [None]
